FAERS Safety Report 16863884 (Version 1)
Quarter: 2019Q3

REPORT INFORMATION
  Report Type: Spontaneous
  Country: US (occurrence: US)
  Receive Date: 20190927
  Receipt Date: 20190927
  Transmission Date: 20191005
  Serious: No
  Sender: FDA-Public Use
  Company Number: US-SA-2019SA267567

PATIENT
  Age: 72 Year
  Sex: Female

DRUGS (1)
  1. AMARYL [Suspect]
     Active Substance: GLIMEPIRIDE
     Dosage: UNK
     Route: 065
     Dates: start: 20120710

REACTIONS (1)
  - Rash pruritic [Unknown]
